FAERS Safety Report 6071435-9 (Version None)
Quarter: 2009Q1

REPORT INFORMATION
  Report Type: 
  Country: None (occurrence: None)
  Receive Date: 20090204
  Receipt Date: 20090122
  Transmission Date: 20090719
  Serious: Yes (Other)
  Sender: FDA-Public Use
  Company Number: 8036472

PATIENT
  Age: 41 Year
  Sex: Female
  Weight: 59.4 kg

DRUGS (3)
  1. CIMZIA [Suspect]
     Indication: CROHN'S DISEASE
     Dosage: 200 MG/M SC; 400 MG SC
     Route: 058
     Dates: start: 20080601
  2. CIMZIA [Suspect]
     Indication: CROHN'S DISEASE
     Dosage: 200 MG/M SC; 400 MG SC
     Route: 058
     Dates: start: 20080701
  3. TRAMADOL HCL [Concomitant]

REACTIONS (3)
  - CARDIAC FAILURE [None]
  - CARDIOMEGALY [None]
  - CARDIOMYOPATHY [None]
